FAERS Safety Report 8173694-5 (Version None)
Quarter: 2012Q1

REPORT INFORMATION
  Report Type: 
  Country: None (occurrence: None)
  Receive Date: 20120229
  Receipt Date: 20120216
  Transmission Date: 20120608
  Serious: Yes (Hospitalization)
  Sender: FDA-Public Use
  Company Number: GB-ACTELION-A-CH2011-57931

PATIENT
  Age: 52 Year
  Sex: Female
  Weight: 68.5 kg

DRUGS (6)
  1. SILDENAFIL [Suspect]
     Dosage: 20 MG, TID
     Route: 048
  2. DIGOXIN [Concomitant]
  3. FERROUS SULFATE TAB [Concomitant]
  4. TRACLEER [Suspect]
     Indication: PULMONARY ARTERIAL HYPERTENSION
     Dosage: 125 MG, BID
     Route: 048
     Dates: start: 20090701
  5. WARFARIN SODIUM [Suspect]
  6. OMEPRAZOLE [Concomitant]

REACTIONS (6)
  - SINUSITIS [None]
  - COUGH [None]
  - EYE PAIN [None]
  - ERYTHEMA [None]
  - SINUS HEADACHE [None]
  - NASAL CONGESTION [None]
